FAERS Safety Report 18743961 (Version 3)
Quarter: 2021Q3

REPORT INFORMATION
  Report Type: Report from Study
  Country: FR (occurrence: FR)
  Receive Date: 20210114
  Receipt Date: 20210720
  Transmission Date: 20211014
  Serious: Yes (Death, Hospitalization, Other)
  Sender: FDA-Public Use
  Company Number: FR-JNJFOC-20210111165

PATIENT

DRUGS (2)
  1. ZYTIGA [Suspect]
     Active Substance: ABIRATERONE ACETATE
     Indication: PRODUCT USED FOR UNKNOWN INDICATION
     Route: 048
  2. ENZALUTAMIDE [Suspect]
     Active Substance: ENZALUTAMIDE
     Indication: PRODUCT USED FOR UNKNOWN INDICATION
     Route: 065

REACTIONS (11)
  - Hepatitis fulminant [Fatal]
  - Myocardial ischaemia [Unknown]
  - Cardiac failure acute [Unknown]
  - Atrial fibrillation [Unknown]
  - Ischaemic stroke [Unknown]
  - Seizure [Unknown]
  - Liver injury [Unknown]
  - Electrocardiogram QT prolonged [Unknown]
  - Hepatitis acute [Fatal]
  - Torsade de pointes [Unknown]
  - Acute kidney injury [Unknown]
